FAERS Safety Report 7492822-8 (Version None)
Quarter: 2011Q2

REPORT INFORMATION
  Report Type: 
  Country: None (occurrence: None)
  Receive Date: 20110512
  Receipt Date: 20110422
  Transmission Date: 20111010
  Serious: Yes (Other)
  Sender: FDA-Public Use
  Company Number: OTC-2011-00006

PATIENT
  Age: 83 Year
  Sex: Female
  Weight: 68.0396 kg

DRUGS (2)
  1. ENABLEX [Concomitant]
  2. NEUTROGENA HEALTHY SKIN FACE LOTION SPF 15 [Suspect]
     Indication: PROPHYLAXIS AGAINST SOLAR RADIATION
     Dosage: DAILY, TOPICAL
     Route: 061
     Dates: start: 20100422, end: 20110408

REACTIONS (1)
  - SKIN CANCER [None]
